FAERS Safety Report 4864234-4 (Version None)
Quarter: 2005Q4

REPORT INFORMATION
  Report Type: 
  Country: None (occurrence: None)
  Receive Date: 20051220
  Receipt Date: 20051220
  Transmission Date: 20060501
  Serious: Yes (Hospitalization)
  Sender: FDA-Public Use
  Company Number: None

PATIENT
  Age: 85 Year
  Sex: Male

DRUGS (2)
  1. LISINOPRIL [Suspect]
     Indication: RENAL FAILURE ACUTE
     Dosage: 20 MG PO DAILY
     Route: 048
  2. SPIRONOLACTONE [Suspect]
     Indication: HYPERKALAEMIA
     Dosage: 25 MG PO DAILY
     Route: 048

REACTIONS (2)
  - BLOOD POTASSIUM INCREASED [None]
  - DYSPNOEA [None]
